FAERS Safety Report 5259868-1 (Version None)
Quarter: 2007Q1

REPORT INFORMATION
  Report Type: 
  Country: None (occurrence: None)
  Receive Date: 20061208
  Receipt Date: 20051114
  Transmission Date: 20070707
  Serious: Yes (Hospitalization)
  Sender: FDA-Public Use
  Company Number: 2005AC01831

PATIENT
  Age: 46 Year
  Sex: Female

DRUGS (4)
  1. NEXIUM [Suspect]
     Indication: DYSPEPSIA
  2. NEXIUM [Suspect]
     Indication: EROSIVE OESOPHAGITIS
  3. NEXIUM [Suspect]
     Indication: DYSPEPSIA
     Dosage: DOSE INCREASED PRIOR TO WITHDRAWAL
  4. NEXIUM [Suspect]
     Indication: EROSIVE OESOPHAGITIS
     Dosage: DOSE INCREASED PRIOR TO WITHDRAWAL

REACTIONS (1)
  - GASTRIC POLYPS [None]
